FAERS Safety Report 20928948 (Version 1)
Quarter: 2022Q2

REPORT INFORMATION
  Report Type: Spontaneous
  Country: IT (occurrence: IT)
  Receive Date: 20220608
  Receipt Date: 20220608
  Transmission Date: 20220720
  Serious: Yes (Other)
  Sender: FDA-Public Use
  Company Number: IT-Accord-264179

PATIENT
  Age: 69 Year
  Sex: Female

DRUGS (7)
  1. PEMBROLIZUMAB [Suspect]
     Active Substance: PEMBROLIZUMAB
     Dosage: 200 MILLIGRAM, Q3W
     Route: 042
     Dates: start: 20220408
  2. CARBOPLATIN [Suspect]
     Active Substance: CARBOPLATIN
     Dosage: 480 MILLIGRAM, Q3W
     Route: 042
     Dates: start: 20220408
  3. PACLITAXEL [Suspect]
     Active Substance: PACLITAXEL
     Dosage: 120 MILLIGRAM, ONCE A WEEK
     Route: 042
     Dates: start: 20220408
  4. PURSENNID EX-LAX [SENNOSIDE A+B] [Concomitant]
     Dosage: 12 MILLIGRAM, QD
     Route: 048
     Dates: start: 20120415
  5. ALENDRONATE SODIUM [Concomitant]
     Active Substance: ALENDRONATE SODIUM
     Dosage: 70 MILLIGRAM, QD
     Route: 048
     Dates: start: 2021
  6. LANSOPRAZOLE [Concomitant]
     Active Substance: LANSOPRAZOLE
     Dosage: 30 MILLIGRAM, QD
     Route: 048
     Dates: start: 2021
  7. CALCIUM CARBONATE\CHOLECALCIFEROL [Concomitant]
     Active Substance: CALCIUM CARBONATE\CHOLECALCIFEROL
     Dosage: 600 MILLIGRAM, QD
     Route: 048
     Dates: start: 2021

REACTIONS (2)
  - Anaemia [Recovered/Resolved]
  - Platelet count decreased [Recovered/Resolved]

NARRATIVE: CASE EVENT DATE: 20220429
